FAERS Safety Report 10593947 (Version 3)
Quarter: 2015Q1

REPORT INFORMATION
  Report Type: Spontaneous
  Country: JP (occurrence: JP)
  Receive Date: 20141119
  Receipt Date: 20150114
  Transmission Date: 20150720
  Serious: Yes (Hospitalization)
  Sender: FDA-Public Use
  Company Number: JP-BAYER-2014-170554

PATIENT
  Age: 81 Year
  Sex: Female
  Weight: 45 kg

DRUGS (53)
  1. XARELTO [Suspect]
     Active Substance: RIVAROXABAN
     Indication: ATRIAL FIBRILLATION
     Dosage: 10 MG, QD
     Route: 048
     Dates: start: 20140815, end: 20140903
  2. XARELTO [Suspect]
     Active Substance: RIVAROXABAN
     Indication: CEREBROVASCULAR ACCIDENT PROPHYLAXIS
     Dosage: 20 MG, UNK
     Route: 048
     Dates: start: 20140904, end: 20140905
  3. ALLOPURINOL. [Suspect]
     Active Substance: ALLOPURINOL
     Dosage: DAILY DOSE 100 MG
     Route: 048
     Dates: start: 20141009, end: 20141111
  4. ALLOPURINOL. [Suspect]
     Active Substance: ALLOPURINOL
     Dosage: UNK
  5. PRAVASTATIN SODIUM. [Suspect]
     Active Substance: PRAVASTATIN SODIUM
     Dosage: DAILY DOSE 20 MG
     Route: 048
     Dates: start: 20141007, end: 20141008
  6. ACARDI [Concomitant]
     Dosage: DAILY DOSE 5 MG
     Route: 048
     Dates: start: 20140814, end: 20140903
  7. ACARDI [Concomitant]
     Dosage: DAILY DOSE 10 MG
     Route: 048
     Dates: start: 20141007, end: 20141008
  8. SPIRONOLACTONE. [Concomitant]
     Active Substance: SPIRONOLACTONE
     Dosage: DAILY DOSE 50 MG
     Route: 048
     Dates: start: 20140819, end: 20140903
  9. DIART [Concomitant]
     Active Substance: AZOSEMIDE
     Dosage: DAILY DOSE 240 MG
     Route: 048
     Dates: start: 20141007, end: 20141008
  10. PLAVIX [Suspect]
     Active Substance: CLOPIDOGREL BISULFATE
     Indication: MYOCARDIAL ISCHAEMIA
     Dosage: 75 MG, QD
     Route: 048
     Dates: start: 20141009, end: 20141111
  11. ACARDI [Concomitant]
     Dosage: DAILY DOSE 5 MG
     Route: 048
     Dates: start: 20141009, end: 20141110
  12. PLAVIX [Suspect]
     Active Substance: CLOPIDOGREL BISULFATE
     Indication: MYOCARDIAL ISCHAEMIA
     Dosage: 75 MG, QD
     Route: 048
     Dates: start: 20140813, end: 20140903
  13. LANSOPRAZOLE. [Suspect]
     Active Substance: LANSOPRAZOLE
     Dosage: DAILY DOSE 60 MG
     Route: 048
     Dates: start: 20141007, end: 20141008
  14. ACARDI [Concomitant]
     Dosage: DAILY DOSE 2.5 MG
     Route: 048
     Dates: start: 20140813, end: 20140813
  15. SPIRONOLACTONE. [Concomitant]
     Active Substance: SPIRONOLACTONE
     Dosage: DAILY DOSE 100 MG
     Route: 048
     Dates: start: 20140904, end: 20140905
  16. DIART [Concomitant]
     Active Substance: AZOSEMIDE
     Dosage: DAILY DOSE 90 MG
     Route: 048
     Dates: start: 20140820, end: 20140821
  17. FUROSEMIDE. [Concomitant]
     Active Substance: FUROSEMIDE
     Dosage: UNK
  18. ALLOPURINOL. [Suspect]
     Active Substance: ALLOPURINOL
     Dosage: DAILY DOSE 100 MG
     Route: 048
     Dates: start: 20140906, end: 20141006
  19. SPIRONOLACTONE. [Concomitant]
     Active Substance: SPIRONOLACTONE
     Dosage: DAILY DOSE 25 MG
     Route: 048
     Dates: start: 20140818, end: 20140818
  20. SPIRONOLACTONE. [Concomitant]
     Active Substance: SPIRONOLACTONE
     Dosage: DAILY DOSE 50 MG
     Route: 048
     Dates: start: 20140906, end: 20141006
  21. ALLOPURINOL. [Suspect]
     Active Substance: ALLOPURINOL
     Dosage: DAILY DOSE 200 MG
     Route: 048
     Dates: start: 20141007, end: 20141008
  22. PRAVASTATIN SODIUM. [Suspect]
     Active Substance: PRAVASTATIN SODIUM
     Dosage: DAILY DOSE 10 MG
     Route: 048
     Dates: start: 20140906, end: 20141006
  23. DIART [Concomitant]
     Active Substance: AZOSEMIDE
     Dosage: DAILY DOSE 60 MG
     Route: 048
     Dates: start: 20140815, end: 20140819
  24. DIART [Concomitant]
     Active Substance: AZOSEMIDE
     Dosage: DAILY DOSE 120 MG
     Route: 048
     Dates: start: 20140906, end: 20141006
  25. DIART [Concomitant]
     Active Substance: AZOSEMIDE
     Dosage: DAILY DOSE 120 MG
     Route: 048
     Dates: start: 20141009, end: 20141110
  26. XARELTO [Suspect]
     Active Substance: RIVAROXABAN
     Indication: ATRIAL FIBRILLATION
     Dosage: 20 MG, UNK
     Dates: start: 20141007, end: 20141008
  27. PLAVIX [Suspect]
     Active Substance: CLOPIDOGREL BISULFATE
     Indication: MYOCARDIAL ISCHAEMIA
     Dosage: DAILY DOSE 150 MG
     Route: 048
     Dates: start: 20140904, end: 20140905
  28. PLAVIX [Suspect]
     Active Substance: CLOPIDOGREL BISULFATE
     Indication: MYOCARDIAL ISCHAEMIA
     Dosage: 75 MG, QD
     Route: 048
     Dates: start: 20140906, end: 20141006
  29. ACARDI [Concomitant]
     Dosage: DAILY DOSE 10 MG
     Route: 048
     Dates: start: 20140904, end: 20140905
  30. ACARDI [Concomitant]
     Dosage: DAILY DOSE 5 MG
     Route: 048
     Dates: start: 20140906, end: 20141006
  31. SPIRONOLACTONE. [Concomitant]
     Active Substance: SPIRONOLACTONE
     Dosage: DAILY DOSE 100 MG
     Route: 048
     Dates: start: 20141007, end: 20141008
  32. DIART [Concomitant]
     Active Substance: AZOSEMIDE
     Dosage: DAILY DOSE 180 MG
     Route: 048
     Dates: start: 20140827, end: 20140827
  33. FLOMOX [Concomitant]
     Active Substance: CEFCAPENE PIVOXIL HYDROCHLORIDE HYDRATE
     Dosage: DAILY DOSE 75 MG
     Route: 048
     Dates: start: 20140813, end: 20140813
  34. XARELTO [Suspect]
     Active Substance: RIVAROXABAN
     Indication: ATRIAL FIBRILLATION
     Dosage: 10 MG, QD
     Route: 048
     Dates: start: 20141009, end: 20141111
  35. BAYASPIRIN [Suspect]
     Active Substance: ASPIRIN
     Dosage: UNK
     Route: 048
  36. PLAVIX [Suspect]
     Active Substance: CLOPIDOGREL BISULFATE
     Indication: MYOCARDIAL ISCHAEMIA
     Dosage: DAILY DOSE 150 MG
     Route: 048
     Dates: start: 20141007, end: 20141008
  37. ALLOPURINOL. [Suspect]
     Active Substance: ALLOPURINOL
     Dosage: DAILY DOSE 100 MG
     Route: 048
     Dates: start: 20140818, end: 20140903
  38. PRAVASTATIN SODIUM. [Suspect]
     Active Substance: PRAVASTATIN SODIUM
     Dosage: DAILY DOSE 10 MG
     Route: 048
     Dates: start: 20140818, end: 20140903
  39. PRAVASTATIN SODIUM. [Suspect]
     Active Substance: PRAVASTATIN SODIUM
     Dosage: DAILY DOSE 20 MG
     Route: 048
     Dates: start: 20140904, end: 20140905
  40. PRAVASTATIN SODIUM. [Suspect]
     Active Substance: PRAVASTATIN SODIUM
     Dosage: DAILY DOSE 10 MG
     Route: 048
     Dates: start: 20141009, end: 20141111
  41. LANSOPRAZOLE. [Suspect]
     Active Substance: LANSOPRAZOLE
     Dosage: DAILY DOSE 30 MG
     Route: 048
     Dates: start: 20140813, end: 20140903
  42. LANSOPRAZOLE. [Suspect]
     Active Substance: LANSOPRAZOLE
     Dosage: DAILY DOSE 60 MG
     Route: 048
     Dates: start: 20140904, end: 20140905
  43. LANSOPRAZOLE. [Suspect]
     Active Substance: LANSOPRAZOLE
     Dosage: DAILY DOSE 30 MG
     Route: 048
     Dates: start: 20140906, end: 20141006
  44. LANSOPRAZOLE. [Suspect]
     Active Substance: LANSOPRAZOLE
     Dosage: DAILY DOSE 30 MG
     Route: 048
     Dates: start: 20141009, end: 20141111
  45. EVEROLIMUS [Suspect]
     Active Substance: EVEROLIMUS
     Indication: CORONARY ARTERIAL STENT INSERTION
     Dosage: UNK
  46. SPIRONOLACTONE. [Concomitant]
     Active Substance: SPIRONOLACTONE
     Dosage: DAILY DOSE 50 MG
     Route: 048
     Dates: start: 20141009, end: 20141110
  47. DIART [Concomitant]
     Active Substance: AZOSEMIDE
     Dosage: DAILY DOSE 120 MG
     Route: 048
     Dates: start: 20140828, end: 20140903
  48. FLOMOX [Concomitant]
     Active Substance: CEFCAPENE PIVOXIL HYDROCHLORIDE HYDRATE
     Dosage: DAILY DOSE 225 MG
     Route: 048
     Dates: start: 20140825, end: 20140827
  49. XARELTO [Suspect]
     Active Substance: RIVAROXABAN
     Indication: ATRIAL FIBRILLATION
     Dosage: 10 MG, QD
     Route: 048
     Dates: start: 20140906, end: 20141006
  50. ALLOPURINOL. [Suspect]
     Active Substance: ALLOPURINOL
     Dosage: DAILY DOSE 200 MG
     Route: 048
     Dates: start: 20140904, end: 20140905
  51. DIART [Concomitant]
     Active Substance: AZOSEMIDE
     Dosage: DAILY DOSE 150 MG
     Route: 048
     Dates: start: 20140822, end: 20140826
  52. DIART [Concomitant]
     Active Substance: AZOSEMIDE
     Dosage: DAILY DOSE 240 MG
     Route: 048
     Dates: start: 20140904, end: 20140905
  53. FLOMOX [Concomitant]
     Active Substance: CEFCAPENE PIVOXIL HYDROCHLORIDE HYDRATE
     Dosage: DAILY DOSE 225 MG
     Route: 048
     Dates: start: 20140814, end: 20140816

REACTIONS (5)
  - Rash [Recovered/Resolved]
  - Dyspnoea [Recovered/Resolved]
  - Crepitations [Recovered/Resolved]
  - Dyspnoea exertional [Recovered/Resolved]
  - Interstitial lung disease [Recovered/Resolved]

NARRATIVE: CASE EVENT DATE: 201410
